FAERS Safety Report 8899421 (Version 2)
Quarter: 2013Q1

REPORT INFORMATION
  Report Type: Spontaneous
  Country: IT (occurrence: IT)
  Receive Date: 20121109
  Receipt Date: 20130220
  Transmission Date: 20140127
  Serious: Yes (Hospitalization)
  Sender: FDA-Public Use
  Company Number: IT-ROCHE-1153827

PATIENT
  Age: 76 Year
  Sex: Male

DRUGS (3)
  1. SYNFLEX [Suspect]
     Indication: APICAL GRANULOMA
     Route: 048
     Dates: start: 20121026, end: 20121026
  2. CLAVULIN [Suspect]
     Indication: APICAL GRANULOMA
     Dosage: 875 MG/125 MG
     Route: 048
     Dates: start: 20121026, end: 20121026
  3. ACECLIDINE HYDROCHLORIDE [Concomitant]
     Indication: GLAUCOMA
     Dosage: EYE DROPS
     Route: 065

REACTIONS (6)
  - Face oedema [Recovering/Resolving]
  - Hyperhidrosis [Recovering/Resolving]
  - Lip oedema [Recovering/Resolving]
  - Pallor [Recovering/Resolving]
  - Urticaria [Recovering/Resolving]
  - Vomiting [Recovering/Resolving]
